FAERS Safety Report 9518613 (Version 3)
Quarter: 2014Q1

REPORT INFORMATION
  Report Type: Spontaneous
  Country: US (occurrence: None)
  Receive Date: 20130305
  Receipt Date: 20140306
  Transmission Date: 20141002
  Serious: Yes (Other)
  Sender: FDA-Public Use
  Company Number: 163-21880-12121249

PATIENT
  Age: 63 Year
  Sex: Male

DRUGS (6)
  1. REVLIMID (LENALIDOMIDE) (25 MILLIGRAM, CAPSULES) [Suspect]
     Indication: PLASMA CELL MYELOMA
     Dosage: 5 IN 7 D,
     Route: 048
     Dates: start: 20110113
  2. METFORMIN (METFORMIN) (UNKNOWN) [Concomitant]
  3. CALCIUM ACETATE (CALCIUM ACETATE) (UNKNOWN) [Concomitant]
  4. VELCADE (BORTEZOMIB) (UNKNOWN) [Concomitant]
  5. ASPIRIN (ACETYLSALICYLIC ACID) (UNKNOWN) (ACETYLSALICYLIC ACID) [Concomitant]
  6. PROCRIT(ERYTHROPOIETIN)(UNKNOWN) [Concomitant]

REACTIONS (3)
  - Staphylococcal infection [None]
  - Hypertension [None]
  - Influenza [None]
